FAERS Safety Report 10370324 (Version 1)
Quarter: 2014Q3

REPORT INFORMATION
  Report Type: Spontaneous
  Country: DE (occurrence: DE)
  Receive Date: 20140808
  Receipt Date: 20140808
  Transmission Date: 20150326
  Serious: Yes (Other)
  Sender: FDA-Public Use
  Company Number: DE-ELI_LILLY_AND_COMPANY-DE201408001030

PATIENT
  Age: 52 Year
  Sex: Female

DRUGS (4)
  1. PEMETREXED [Suspect]
     Active Substance: PEMETREXED
     Dosage: 350 MG/M2, CYCLICAL
     Route: 065
     Dates: start: 201304
  2. PEMETREXED [Suspect]
     Active Substance: PEMETREXED
     Indication: PERITONEAL MESOTHELIOMA MALIGNANT
     Dosage: 500 MG/M2, CYCLICAL
     Route: 065
     Dates: start: 201301
  3. CISPLAN [Suspect]
     Active Substance: CISPLATIN
     Indication: PERITONEAL MESOTHELIOMA MALIGNANT
     Dosage: 40 MG/M2, CYCLICAL
     Route: 065
     Dates: start: 201301
  4. CISPLAN [Suspect]
     Active Substance: CISPLATIN
     Dosage: 28 MG/M2, CYCLICAL
     Route: 065
     Dates: start: 201304

REACTIONS (5)
  - Renal failure [Not Recovered/Not Resolved]
  - Mucosal inflammation [Unknown]
  - Thrombocytopenia [Unknown]
  - Leukopenia [Unknown]
  - General physical health deterioration [Unknown]

NARRATIVE: CASE EVENT DATE: 201304
